FAERS Safety Report 5452935-9 (Version None)
Quarter: 2007Q3

REPORT INFORMATION
  Report Type: 
  Country: None (occurrence: None)
  Receive Date: 20070914
  Receipt Date: 20070907
  Transmission Date: 20080115
  Serious: Yes (Hospitalization)
  Sender: FDA-Public Use
  Company Number: US-ELI_LILLY_AND_COMPANY-US200709001380

PATIENT
  Age: 60 Year
  Sex: Male

DRUGS (4)
  1. HUMATROPE [Suspect]
     Dosage: 0.6 MG, UNKNOWN
     Route: 058
     Dates: start: 20061001, end: 20070401
  2. HUMATROPE [Suspect]
     Dosage: 0.6 MG, UNKNOWN
     Route: 058
     Dates: start: 20070101, end: 20070101
  3. HUMATROPE [Suspect]
     Dosage: 0.6 MG, UNKNOWN
     Route: 058
     Dates: start: 20070101
  4. APOPRIL [Concomitant]
     Indication: BLOOD PRESSURE ABNORMAL
     Dosage: UNK, UNKNOWN
     Route: 065

REACTIONS (5)
  - DIVERTICULITIS [None]
  - INFECTION [None]
  - INTESTINAL PERFORATION [None]
  - PAIN [None]
  - PHARMACEUTICAL PRODUCT COMPLAINT [None]
